FAERS Safety Report 9494090 (Version 1)
Quarter: 2013Q4

REPORT INFORMATION
  Report Type: Spontaneous
  Country: US (occurrence: None)
  Receive Date: 20130829
  Receipt Date: 20130829
  Transmission Date: 20140711
  Serious: Yes (Hospitalization)
  Sender: FDA-Public Use
  Company Number: None

PATIENT
  Age: 79 Year
  Sex: Female
  Weight: 55.93 kg

DRUGS (15)
  1. LENALIDOMIDE [Suspect]
     Indication: LYMPHOMA
     Dosage: 10MG,  18DAYS,  PO
     Route: 048
     Dates: start: 20130730, end: 20130816
  2. RITUXIMAB [Suspect]
     Indication: LYMPHOMA
     Dosage: 595MG  X1,  IV
     Route: 042
     Dates: start: 20130813
  3. COLACE [Concomitant]
  4. SENNA [Concomitant]
  5. XANAX [Concomitant]
  6. NORVASC [Concomitant]
  7. ARICEPT [Concomitant]
  8. CRESTOR [Concomitant]
  9. HYDROCHLOROTHIAZIDE [Concomitant]
  10. IRON SULFATE [Concomitant]
  11. SYNTHROID [Concomitant]
  12. ZOLOFT [Concomitant]
  13. ALLOPURINOL [Concomitant]
  14. HYDROCODONE [Concomitant]
  15. LEVAQUIN [Concomitant]

REACTIONS (3)
  - Febrile neutropenia [None]
  - Respiratory tract infection [None]
  - Rash maculo-papular [None]
